FAERS Safety Report 17716289 (Version 1)
Quarter: 2020Q2

REPORT INFORMATION
  Report Type: Spontaneous
  Country: US (occurrence: US)
  Receive Date: 20200428
  Receipt Date: 20200428
  Transmission Date: 20200714
  Serious: No
  Sender: FDA-Public Use
  Company Number: US-SENTYNL THERAPEUTICS, INC.  -2083229

PATIENT
  Age: 68 Year
  Sex: Male

DRUGS (12)
  1. ZETIA [Concomitant]
     Active Substance: EZETIMIBE
  2. XTAMPZA [Concomitant]
     Active Substance: OXYCODONE
  3. TIZANIDINE. [Concomitant]
     Active Substance: TIZANIDINE
  4. LEVORPHANOL TARTRATE. [Suspect]
     Active Substance: LEVORPHANOL TARTRATE
     Indication: LUMBAR RADICULOPATHY
  5. OXYCODONE AND ACETAMINOPHEN [Concomitant]
     Active Substance: ACETAMINOPHEN\OXYCODONE HYDROCHLORIDE
  6. NITROGLYCERIN. [Concomitant]
     Active Substance: NITROGLYCERIN
  7. LISINOPRIL. [Concomitant]
     Active Substance: LISINOPRIL
  8. GABAPENTIN. [Concomitant]
     Active Substance: GABAPENTIN
  9. PANTOPRAZOLE SODIUM. [Concomitant]
     Active Substance: PANTOPRAZOLE SODIUM
  10. CLOPIDOGREL BISULFATE. [Concomitant]
     Active Substance: CLOPIDOGREL BISULFATE
  11. ROSUVASTATIN. [Concomitant]
     Active Substance: ROSUVASTATIN
  12. ZOLPIDEM [Concomitant]
     Active Substance: ZOLPIDEM TARTRATE

REACTIONS (1)
  - Groin pain [Not Recovered/Not Resolved]
